FAERS Safety Report 25445849 (Version 1)
Quarter: 2025Q2

REPORT INFORMATION
  Report Type: Spontaneous
  Country: SE (occurrence: None)
  Receive Date: 20250617
  Receipt Date: 20250617
  Transmission Date: 20250717
  Serious: Yes (Other)
  Sender: FDA-CTU
  Company Number: None

PATIENT
  Age: 29 Year
  Sex: Male
  Weight: 82 kg

DRUGS (5)
  1. BRINTELLIX [Suspect]
     Active Substance: VORTIOXETINE HYDROBROMIDE
     Indication: Depression
     Dates: start: 20230923, end: 20240401
  2. LITHIUM CARBONATE [Concomitant]
     Active Substance: LITHIUM CARBONATE
  3. BUPROPION [Concomitant]
     Active Substance: BUPROPION
  4. busprione [Concomitant]
  5. OLANZAPINE [Concomitant]
     Active Substance: OLANZAPINE

REACTIONS (9)
  - Anxiety [None]
  - Erectile dysfunction [None]
  - Loss of libido [None]
  - Anhedonia [None]
  - Brain fog [None]
  - Disturbance in attention [None]
  - Pelvic floor dysfunction [None]
  - Genital hypoaesthesia [None]
  - Depression [None]

NARRATIVE: CASE EVENT DATE: 20240101
